FAERS Safety Report 16362151 (Version 3)
Quarter: 2020Q1

REPORT INFORMATION
  Report Type: Spontaneous
  Country: US (occurrence: US)
  Receive Date: 20190528
  Receipt Date: 20200313
  Transmission Date: 20200409
  Serious: No
  Sender: FDA-Public Use
  Company Number: US-SUNOVION-2019SUN002094

PATIENT
  Sex: Male

DRUGS (2)
  1. LATUDA [Suspect]
     Active Substance: LURASIDONE HYDROCHLORIDE
     Route: 048
  2. LATUDA [Suspect]
     Active Substance: LURASIDONE HYDROCHLORIDE
     Indication: BIPOLAR DISORDER
     Dosage: 20 MG
     Route: 048

REACTIONS (7)
  - Speech disorder [Unknown]
  - Daydreaming [Not Recovered/Not Resolved]
  - Slow speech [Unknown]
  - Dysphemia [Unknown]
  - Thinking abnormal [Unknown]
  - Communication disorder [Unknown]
  - Agitation [Unknown]
